FAERS Safety Report 18888098 (Version 8)
Quarter: 2023Q4

REPORT INFORMATION
  Report Type: Spontaneous
  Country: JP (occurrence: JP)
  Receive Date: 20210213
  Receipt Date: 20231013
  Transmission Date: 20240109
  Serious: Yes (Hospitalization, Other)
  Sender: FDA-Public Use
  Company Number: JP-MSD-M2021-02928

PATIENT
  Age: 84 Year
  Sex: Female

DRUGS (1)
  1. KEYTRUDA [Suspect]
     Active Substance: PEMBROLIZUMAB
     Indication: Lung adenocarcinoma recurrent
     Dosage: 200 MILLIGRAM, Q3W
     Route: 041
     Dates: start: 20200407, end: 202101

REACTIONS (7)
  - Cranial nerve paralysis [Recovering/Resolving]
  - Optic neuritis [Recovering/Resolving]
  - Hyponatraemia [Recovering/Resolving]
  - Blood corticotrophin decreased [Recovering/Resolving]
  - Immune-mediated neurological disorder [Recovering/Resolving]
  - Cortisol decreased [Unknown]
  - Decreased appetite [Recovering/Resolving]

NARRATIVE: CASE EVENT DATE: 20210109
